FAERS Safety Report 9413560 (Version 1)
Quarter: 2013Q3

REPORT INFORMATION
  Report Type: Spontaneous
  Country: GB (occurrence: None)
  Receive Date: 20130703
  Receipt Date: 20130703
  Transmission Date: 20140515
  Serious: Yes (Hospitalization)
  Sender: FDA-Public Use
  Company Number: 222187

PATIENT
  Age: 61 Year
  Sex: Female

DRUGS (1)
  1. INNOHEP (TINZAPARIN SODIUM) [Suspect]
     Indication: THROMBOSIS PROPHYLAXIS
     Route: 058

REACTIONS (6)
  - Abdominal wall haematoma [None]
  - Gastrointestinal haemorrhage [None]
  - Coagulopathy [None]
  - Splenomegaly [None]
  - Wrong technique in drug usage process [None]
  - Abdominal pain [None]
